FAERS Safety Report 15630464 (Version 3)
Quarter: 2019Q3

REPORT INFORMATION
  Report Type: Report from Study
  Country: US (occurrence: US)
  Receive Date: 20181118
  Receipt Date: 20190718
  Transmission Date: 20191004
  Serious: No
  Sender: FDA-Public Use
  Company Number: PHEH2018US048380

PATIENT
  Age: 29 Year
  Sex: Female

DRUGS (1)
  1. GILENYA [Suspect]
     Active Substance: FINGOLIMOD HYDROCHLORIDE
     Indication: MULTIPLE SCLEROSIS
     Dosage: 0.5 MG, QD (ONCE DAILY)
     Route: 048
     Dates: start: 20181023

REACTIONS (3)
  - Photophobia [Recovering/Resolving]
  - Weight increased [Not Recovered/Not Resolved]
  - Astigmatism [Unknown]

NARRATIVE: CASE EVENT DATE: 20181023
